FAERS Safety Report 5459120-5 (Version None)
Quarter: 2007Q3

REPORT INFORMATION
  Report Type: 
  Country: None (occurrence: None)
  Receive Date: 20070919
  Receipt Date: 20070910
  Transmission Date: 20080115
  Serious: Yes (Other)
  Sender: FDA-Public Use
  Company Number: US-ELI_LILLY_AND_COMPANY-US200708002498

PATIENT
  Age: 74 Year
  Sex: Female
  Weight: 98.866 kg

DRUGS (10)
  1. NORVASC [Concomitant]
     Dosage: 10 MG, UNK
  2. PRAVACHOL [Concomitant]
     Dosage: 20 MG, UNK
  3. STELAZINE [Concomitant]
  4. FORTEO [Suspect]
     Indication: BACK PAIN
     Dosage: 20 UG, DAILY (1/D)
     Dates: start: 20070615
  5. ZESTRIL [Concomitant]
     Indication: HYPERTENSION
  6. COZAAR [Concomitant]
     Indication: HYPERTENSION
     Dosage: 50 MG, EACH EVENING
  7. MULTI-VIT [Concomitant]
     Indication: SUPPLEMENTATION THERAPY
  8. VITAMIN E /001105/ [Concomitant]
     Indication: SUPPLEMENTATION THERAPY
  9. OSCAL D [Concomitant]
     Indication: SUPPLEMENTATION THERAPY
     Dosage: 1000 MG, UNK
  10. ACTONEL [Concomitant]
     Indication: BACK PAIN
     Dosage: UNK, DAILY (1/D)
     Dates: end: 20070615

REACTIONS (8)
  - ANXIETY [None]
  - BLOOD PRESSURE INCREASED [None]
  - BONE PAIN [None]
  - GLAUCOMA [None]
  - ILL-DEFINED DISORDER [None]
  - MUSCLE SPASMS [None]
  - ORAL MUCOSAL EXFOLIATION [None]
  - PAIN IN EXTREMITY [None]
